FAERS Safety Report 6622128-8 (Version None)
Quarter: 2010Q1

REPORT INFORMATION
  Report Type: 
  Country: None (occurrence: None)
  Receive Date: 20100303
  Receipt Date: 20100219
  Transmission Date: 20100710
  Serious: Yes (Hospitalization)
  Sender: FDA-Public Use
  Company Number: 2009SP016504

PATIENT
  Sex: Male

DRUGS (8)
  1. PEG-INTRON [Suspect]
     Indication: HEPATITIS C
     Dates: start: 20081128
  2. PEG-INTRON [Suspect]
  3. RIBAVIRIN [Suspect]
     Indication: HEPATITIS C
     Dosage: 4 DF;QD
     Dates: start: 20081128
  4. BLINDED SCH 503034 [Suspect]
     Indication: HEPATITIS C
     Dosage: 12 DF;QD
     Dates: start: 20081224
  5. RISPERIDONE [Concomitant]
  6. ETUMINE [Concomitant]
  7. INVEGA [Concomitant]
  8. REMERGON [Concomitant]

REACTIONS (3)
  - ALCOHOL ABUSE [None]
  - CONDITION AGGRAVATED [None]
  - DEPRESSION [None]
